FAERS Safety Report 5739384-0 (Version None)
Quarter: 2008Q2

REPORT INFORMATION
  Report Type: 
  Country: None (occurrence: None)
  Receive Date: 20080515
  Receipt Date: 20080506
  Transmission Date: 20081010
  Serious: Yes (Hospitalization)
  Sender: FDA-Public Use
  Company Number: FR-WYE-H03817908

PATIENT
  Age: 76 Year
  Sex: Female

DRUGS (14)
  1. OROKEN [Interacting]
     Indication: BRONCHITIS
     Dosage: UNKNOWN
     Route: 048
     Dates: start: 20080325, end: 20080329
  2. HYPERIUM [Concomitant]
     Dosage: UNKNOWN
  3. MEDIATENSYL [Concomitant]
     Dosage: UNKNOWN
  4. DIFFU K [Concomitant]
     Dosage: UNKNOWN
  5. PREVISCAN [Interacting]
     Dosage: 10 MG DAILY
     Route: 048
     Dates: end: 20080329
  6. PREVISCAN [Interacting]
     Dosage: 5 MG DAILY
     Route: 048
     Dates: start: 20080331
  7. FLUDEX [Concomitant]
     Dosage: UNKNOWN
     Dates: end: 20080329
  8. DAONIL [Concomitant]
     Dosage: UNKNOWN
  9. MODOPAR [Concomitant]
     Dosage: UNKNOWN
  10. ACTOS [Concomitant]
     Dosage: UNKNOWN
     Dates: end: 20080329
  11. ISOPTIN [Concomitant]
     Dosage: UNKNOWN
     Dates: end: 20080329
  12. KENZEN [Concomitant]
     Dosage: UNKNOWN
     Dates: end: 20080329
  13. ASPIRIN [Suspect]
     Dosage: 75 MG DAILY
     Route: 048
     Dates: end: 20080329
  14. AMOXICILLIN TRIHYDRATE [Suspect]
     Indication: BRONCHITIS
     Dosage: UNKNOWN
     Route: 048
     Dates: start: 20080321, end: 20080325

REACTIONS (4)
  - DRUG INTERACTION [None]
  - HAEMOPTYSIS [None]
  - INTERNATIONAL NORMALISED RATIO INCREASED [None]
  - OVERDOSE [None]
